FAERS Safety Report 8224508-6 (Version None)
Quarter: 2012Q1

REPORT INFORMATION
  Report Type: 
  Country: None (occurrence: None)
  Receive Date: 20120319
  Receipt Date: 20120305
  Transmission Date: 20120608
  Serious: Yes (Hospitalization)
  Sender: FDA-Public Use
  Company Number: UTC-016312

PATIENT
  Age: 47 Year
  Sex: Female
  Weight: 43 kg

DRUGS (4)
  1. LETAIRIS [Concomitant]
  2. REVATIO [Concomitant]
  3. REMODULIN [Suspect]
     Indication: PULMONARY ARTERIAL HYPERTENSION
     Dosage: 36 UG/KG (0.025 UG/KG, 1 IN 1 MIN), SUBCUTANEOUS
     Route: 058
     Dates: start: 20091204
  4. TRACLEER [Concomitant]

REACTIONS (1)
  - INFUSION SITE INFECTION [None]
